FAERS Safety Report 4548284-3 (Version None)
Quarter: 2005Q1

REPORT INFORMATION
  Report Type: 
  Country: None (occurrence: None)
  Receive Date: 20050106
  Receipt Date: 20050106
  Transmission Date: 20050727
  Serious: Yes (Other)
  Sender: FDA-Public Use
  Company Number: None

PATIENT
  Age: 38 Year
  Sex: Female

DRUGS (5)
  1. BUSPIRONE HCL [Suspect]
     Dosage: 7.5 HA  PO
     Route: 048
     Dates: start: 20041115, end: 20041130
  2. BENZACLIN [Concomitant]
  3. NATATAB [Concomitant]
  4. TOPAMAX [Concomitant]
  5. ATIVAN [Concomitant]

REACTIONS (2)
  - INSOMNIA [None]
  - PHARMACEUTICAL PRODUCT COMPLAINT [None]
